FAERS Safety Report 9443565 (Version 1)
Quarter: 2013Q3

REPORT INFORMATION
  Report Type: Spontaneous
  Country: US (occurrence: US)
  Receive Date: 20130806
  Receipt Date: 20130806
  Transmission Date: 20140515
  Serious: No
  Sender: FDA-Public Use
  Company Number: US-PFIZER INC-2013225748

PATIENT
  Sex: Female

DRUGS (2)
  1. ADVIL PM [Suspect]
     Indication: MENORRHAGIA
     Dosage: UNK
  2. ADVIL [Suspect]
     Indication: MENORRHAGIA
     Dosage: UNK

REACTIONS (8)
  - Off label use [Unknown]
  - Overdose [Unknown]
  - Headache [Unknown]
  - Malaise [Unknown]
  - Hangover [Unknown]
  - Feeling abnormal [Unknown]
  - Product outer packaging issue [Unknown]
  - Product physical issue [Unknown]
